FAERS Safety Report 15260016 (Version 4)
Quarter: 2019Q3

REPORT INFORMATION
  Report Type: Spontaneous
  Country: US (occurrence: US)
  Receive Date: 20180809
  Receipt Date: 20190913
  Transmission Date: 20191004
  Serious: No
  Sender: FDA-Public Use
  Company Number: US-PFIZER INC-2018318198

PATIENT
  Age: 59 Year
  Sex: Female
  Weight: 87 kg

DRUGS (8)
  1. LYRICA [Suspect]
     Active Substance: PREGABALIN
     Indication: DIABETIC NEUROPATHY
     Dosage: 50 MG, 2X/DAY
     Route: 048
  2. LYRICA [Suspect]
     Active Substance: PREGABALIN
     Indication: POST HERPETIC NEURALGIA
     Dosage: 100 MG, 2X/DAY
     Route: 048
     Dates: start: 2018, end: 2018
  3. TAMOXIFEN [Concomitant]
     Active Substance: TAMOXIFEN
     Indication: NEOPLASM MALIGNANT
     Dosage: 20 MG, 1X/DAY
  4. LANTUS [Concomitant]
     Active Substance: INSULIN GLARGINE
     Indication: DIABETES MELLITUS
     Dosage: 35 IU, 1X/DAY
  5. METFORMIN [Concomitant]
     Active Substance: METFORMIN HYDROCHLORIDE
     Indication: DIABETES MELLITUS
     Dosage: 850 MG, 2X/DAY
  6. LYRICA [Suspect]
     Active Substance: PREGABALIN
     Dosage: 100 MG, 3X/DAY
     Route: 048
     Dates: start: 2018, end: 2018
  7. LYRICA [Suspect]
     Active Substance: PREGABALIN
     Indication: NEUROPATHY PERIPHERAL
     Dosage: 150 MG, DAILY (50 MG IN THE MORNING AND 100 MG AT NIGHT FOR 1 WEEK)
     Route: 048
     Dates: start: 201803, end: 2018
  8. LYRICA [Suspect]
     Active Substance: PREGABALIN
     Dosage: 50 MG, 3X/DAY

REACTIONS (3)
  - Gait disturbance [Recovered/Resolved]
  - Somnolence [Recovered/Resolved]
  - Herpes zoster [Recovering/Resolving]

NARRATIVE: CASE EVENT DATE: 201802
